FAERS Safety Report 13642153 (Version 2)
Quarter: 2017Q3

REPORT INFORMATION
  Report Type: Report from Study
  Country: US (occurrence: US)
  Receive Date: 20170612
  Receipt Date: 20170918
  Transmission Date: 20171127
  Serious: No
  Sender: FDA-Public Use
  Company Number: PHEH2017US017659

PATIENT
  Weight: 107 kg

DRUGS (1)
  1. COSENTYX [Suspect]
     Active Substance: SECUKINUMAB
     Indication: BACK PAIN
     Dosage: 150 MG, QMO
     Route: 058

REACTIONS (1)
  - Drug ineffective [Not Recovered/Not Resolved]
